FAERS Safety Report 6114867-2 (Version None)
Quarter: 2009Q1

REPORT INFORMATION
  Report Type: 
  Country: None (occurrence: None)
  Receive Date: 20090313
  Receipt Date: 20090304
  Transmission Date: 20090719
  Serious: Yes (Hospitalization)
  Sender: FDA-Public Use
  Company Number: AU-ABBOTT-08P-008-0471591-00

PATIENT
  Sex: Male

DRUGS (20)
  1. SIBUTRAMINE [Suspect]
     Indication: OBESITY
     Route: 048
     Dates: start: 20040325, end: 20080812
  2. ASPIRIN [Concomitant]
     Indication: PROPHYLAXIS
     Route: 048
     Dates: start: 19990101
  3. ASPIRIN [Concomitant]
     Indication: ANGIOPATHY
  4. RAMIPRIL [Concomitant]
     Indication: HYPERTENSION
     Route: 048
     Dates: start: 20070914, end: 20071017
  5. RAMIPRIL [Concomitant]
     Route: 048
     Dates: start: 20071017, end: 20080201
  6. RAMIPRIL [Concomitant]
     Route: 048
     Dates: start: 20080201
  7. AMARYL [Concomitant]
     Indication: TYPE 2 DIABETES MELLITUS
     Route: 048
     Dates: start: 20010101
  8. BETALOC [Concomitant]
     Indication: HYPERTENSION
     Route: 048
     Dates: start: 20031101
  9. DIABEX [Concomitant]
     Indication: TYPE 2 DIABETES MELLITUS
     Route: 048
     Dates: start: 19940101
  10. MINIPRESS [Concomitant]
     Indication: BENIGN PROSTATIC HYPERPLASIA
     Route: 048
     Dates: start: 20000101, end: 20071220
  11. MINIPRESS [Concomitant]
     Route: 048
     Dates: start: 20080201, end: 20080201
  12. PARIET [Concomitant]
     Indication: GASTROOESOPHAGEAL REFLUX DISEASE
     Route: 048
     Dates: start: 20020101
  13. FELDENE D [Concomitant]
     Indication: OSTEOARTHRITIS
     Route: 048
     Dates: start: 19920101, end: 20080501
  14. COLOXYL [Concomitant]
     Indication: CONSTIPATION
     Route: 048
     Dates: start: 19980101
  15. SUDAFED 12 HOUR [Concomitant]
     Indication: NASAL CONGESTION
     Route: 048
     Dates: start: 20060101
  16. NITROGLYCERIN [Concomitant]
     Indication: ANGINA PECTORIS
     Dosage: 1 SPRAY
     Route: 060
     Dates: start: 19990101
  17. NITROGLYCERIN [Concomitant]
     Indication: ANGINA PECTORIS
     Route: 060
     Dates: start: 19890101
  18. PROSTATE HEALTH [Concomitant]
     Indication: ROUTINE HEALTH MAINTENANCE
     Route: 048
     Dates: start: 20071222
  19. SAW PALMETTO [Concomitant]
     Indication: DRUG USE FOR UNKNOWN INDICATION
  20. PANAMAX [Concomitant]
     Indication: OSTEOARTHRITIS
     Dates: start: 20080501

REACTIONS (1)
  - SCHIZOPHRENIFORM DISORDER [None]
